FAERS Safety Report 9918458 (Version 2)
Quarter: 2014Q1

REPORT INFORMATION
  Report Type: Spontaneous
  Country: US (occurrence: US)
  Receive Date: 20140224
  Receipt Date: 20140224
  Transmission Date: 20141002
  Serious: Yes (Other)
  Sender: FDA-Public Use
  Company Number: US-GE HEALTHCARE MEDICAL DIAGNOSTICS-OSCN-PR-1102S-0092

PATIENT
  Age: 45 Year
  Sex: Female

DRUGS (4)
  1. OMNISCAN [Suspect]
     Indication: HYPOTHYROIDISM
     Dates: start: 20060117, end: 20060117
  2. OMNISCAN [Suspect]
     Indication: ALTERED STATE OF CONSCIOUSNESS
     Dates: start: 20061114, end: 20061114
  3. MAGNEVIST [Suspect]
     Indication: GALACTORRHOEA
     Dates: start: 19911227, end: 19911227
  4. MAGNEVIST [Suspect]
     Indication: HYPOTHYROIDISM
     Dates: start: 19950515, end: 19950515

REACTIONS (1)
  - Nephrogenic systemic fibrosis [Not Recovered/Not Resolved]
